FAERS Safety Report 4591004-7 (Version None)
Quarter: 2005Q1

REPORT INFORMATION
  Report Type: 
  Country: None (occurrence: None)
  Receive Date: 20050222
  Receipt Date: 20050222
  Transmission Date: 20050727
  Serious: Yes (Life-Threatening, Hospitalization, Disabling)
  Sender: FDA-Public Use
  Company Number: None

PATIENT
  Age: 58 Year
  Sex: Female
  Weight: 90.7194 kg

DRUGS (1)
  1. CELEBREX [Suspect]
     Indication: RHEUMATOID ARTHRITIS
     Dates: start: 20010911, end: 20010913

REACTIONS (5)
  - CARDIAC DISORDER [None]
  - DRUG HYPERSENSITIVITY [None]
  - HYPERTENSION [None]
  - PLEURAL EFFUSION [None]
  - SERUM SICKNESS [None]
